FAERS Safety Report 6491725-5 (Version None)
Quarter: 2009Q4

REPORT INFORMATION
  Report Type: 
  Country: None (occurrence: None)
  Receive Date: 20091208
  Receipt Date: 20091201
  Transmission Date: 20100525
  Serious: Yes (Death)
  Sender: FDA-Public Use
  Company Number: 2009US004245

PATIENT
  Age: 66 Year
  Sex: Male
  Weight: 86 kg

DRUGS (6)
  1. AMBISOME [Suspect]
     Indication: PNEUMONIA FUNGAL
     Dosage: 5 MG, UID/QD, IV NOS,  3 MG, UID/QD, IV NOS, 1 MG, UID/QD, IV NOS
     Route: 042
     Dates: start: 20080428, end: 20080501
  2. AMBISOME [Suspect]
     Indication: PNEUMONIA FUNGAL
     Dosage: 5 MG, UID/QD, IV NOS,  3 MG, UID/QD, IV NOS, 1 MG, UID/QD, IV NOS
     Route: 042
     Dates: start: 20080502, end: 20080701
  3. AMBISOME [Suspect]
     Indication: PNEUMONIA FUNGAL
     Dosage: 5 MG, UID/QD, IV NOS,  3 MG, UID/QD, IV NOS, 1 MG, UID/QD, IV NOS
     Route: 042
     Dates: start: 20080702, end: 20080702
  4. ITRACONAZOL (ITRACONAZOLE) [Concomitant]
  5. CASPOFUNGIN (CASPOFUNGIN ACETATE) [Concomitant]
  6. VORICONAZOLE [Concomitant]

REACTIONS (1)
  - NEPHROPATHY TOXIC [None]
